FAERS Safety Report 12232060 (Version 3)
Quarter: 2016Q2

REPORT INFORMATION
  Report Type: Spontaneous
  Country: US (occurrence: US)
  Receive Date: 20160401
  Receipt Date: 20160607
  Transmission Date: 20160815
  Serious: Yes (Other)
  Sender: FDA-Public Use
  Company Number: US-MDT-ADR-2016-00613

PATIENT
  Age: 49 Year
  Sex: Female

DRUGS (1)
  1. LIORESAL [Suspect]
     Active Substance: BACLOFEN
     Indication: MUSCLE SPASTICITY
     Dosage: 140 MCG/DAY
     Route: 037
     Dates: start: 20160119

REACTIONS (8)
  - Purulent discharge [Unknown]
  - Medical device site infection [Unknown]
  - Abnormal loss of weight [Unknown]
  - Staphylococcal infection [Unknown]
  - Abdominal infection [Unknown]
  - Fall [Unknown]
  - Localised intraabdominal fluid collection [Unknown]
  - Medical device site discharge [Unknown]

NARRATIVE: CASE EVENT DATE: 2016
